FAERS Safety Report 5843479-0 (Version None)
Quarter: 2008Q3

REPORT INFORMATION
  Report Type: 
  Country: None (occurrence: None)
  Receive Date: 20080811
  Receipt Date: 20080802
  Transmission Date: 20090109
  Serious: Yes (Life-Threatening)
  Sender: FDA-Public Use
  Company Number: 083-21880-08080069

PATIENT
  Age: 54 Year
  Sex: Male

DRUGS (4)
  1. REVLIMID [Suspect]
     Indication: MULTIPLE MYELOMA
     Dosage: 25 MG, 1 IN 1 D, ORAL
     Route: 048
     Dates: start: 20080625, end: 20080712
  2. ENOXAPARIN SODIUM [Concomitant]
  3. ZELITREX (VALACICLOVIR) TABLETS [Concomitant]
  4. NEXIUM [Concomitant]

REACTIONS (2)
  - INTESTINAL INFARCTION [None]
  - PORTAL VEIN THROMBOSIS [None]
